FAERS Safety Report 18958783 (Version 30)
Quarter: 2024Q1

REPORT INFORMATION
  Report Type: Spontaneous
  Country: CA (occurrence: CA)
  Receive Date: 20210302
  Receipt Date: 20240131
  Transmission Date: 20240409
  Serious: Yes (Other)
  Sender: FDA-Public Use
  Company Number: CA-GLAXOSMITHKLINE-CA2021GSK053562

PATIENT

DRUGS (48)
  1. WELLBUTRIN XL [Suspect]
     Active Substance: BUPROPION HYDROCHLORIDE
     Indication: Product used for unknown indication
     Dosage: 300 MG, QD
     Route: 065
  2. WELLBUTRIN XL [Suspect]
     Active Substance: BUPROPION HYDROCHLORIDE
     Dosage: 1 DF
     Route: 065
  3. WELLBUTRIN XL [Suspect]
     Active Substance: BUPROPION HYDROCHLORIDE
     Dosage: 300 MG, QD
     Route: 048
  4. WELLBUTRIN XL [Suspect]
     Active Substance: BUPROPION HYDROCHLORIDE
     Dosage: 1 DF, QD
     Route: 065
  5. BENZOYL PEROXIDE\CLINDAMYCIN PHOSPHATE [Suspect]
     Active Substance: BENZOYL PEROXIDE\CLINDAMYCIN PHOSPHATE
     Indication: Product used for unknown indication
     Dosage: 1 DF, QD 1 IN 24 HR, 1 DOSAGE FORMS
     Route: 061
  6. BENZOYL PEROXIDE\CLINDAMYCIN PHOSPHATE [Suspect]
     Active Substance: BENZOYL PEROXIDE\CLINDAMYCIN PHOSPHATE
     Dosage: 1 DF, QD
     Route: 062
  7. BENZOYL PEROXIDE\CLINDAMYCIN PHOSPHATE [Suspect]
     Active Substance: BENZOYL PEROXIDE\CLINDAMYCIN PHOSPHATE
     Dosage: 1 DF, QD
     Route: 065
  8. BUPROPION [Suspect]
     Active Substance: BUPROPION
     Indication: Product used for unknown indication
     Dosage: UNK
     Route: 065
  9. BUPROPION [Suspect]
     Active Substance: BUPROPION
     Dosage: 300 MG, QD (24 HRS)
     Route: 048
  10. BUPROPION [Suspect]
     Active Substance: BUPROPION
     Dosage: 1 DF
     Route: 065
  11. BUPROPION [Suspect]
     Active Substance: BUPROPION
     Dosage: 300 MG, QD, 1 IN 24 HR
     Route: 065
  12. BUPROPION [Suspect]
     Active Substance: BUPROPION
     Dosage: 1 DF, QD; 1 IN 24 HR
     Route: 065
  13. BUPROPION [Suspect]
     Active Substance: BUPROPION
     Dosage: 300 MG, QD 1 IN 24 HR
     Route: 065
  14. BUPROPION [Suspect]
     Active Substance: BUPROPION
     Dosage: 300 MG, QD 1 IN 24 HR
     Route: 065
  15. BUPROPION [Suspect]
     Active Substance: BUPROPION
     Dosage: 1 DF, QD; 1 IN 24 HR
     Route: 065
  16. ERYTHROMYCIN [Suspect]
     Active Substance: ERYTHROMYCIN
     Indication: Acne
     Dosage: 1 DF, QD
     Route: 065
  17. ERYTHROMYCIN [Suspect]
     Active Substance: ERYTHROMYCIN
     Indication: Product used for unknown indication
     Dosage: 1 DF, QD
     Route: 061
  18. ERYTHROMYCIN [Suspect]
     Active Substance: ERYTHROMYCIN
     Dosage: 1 DF, QD
     Route: 065
  19. ERYTHROMYCIN [Suspect]
     Active Substance: ERYTHROMYCIN
     Dosage: 1 DF, QD
     Route: 065
  20. TRETINOIN [Suspect]
     Active Substance: TRETINOIN
     Indication: Acne
     Dosage: 1 DF, QD
     Route: 061
  21. TRETINOIN [Suspect]
     Active Substance: TRETINOIN
     Dosage: 1 DF, QD
     Route: 061
  22. ERYTHROMYCIN\TRETINOIN [Suspect]
     Active Substance: ERYTHROMYCIN\TRETINOIN
     Indication: Acne
     Dosage: 1 DF, QD 1 IN 24 HOURS
     Route: 061
  23. ERYTHROMYCIN\TRETINOIN [Suspect]
     Active Substance: ERYTHROMYCIN\TRETINOIN
     Dosage: 1 DF, QD 1 IN 24 HOURS
     Route: 065
  24. QUETIAPINE [Suspect]
     Active Substance: QUETIAPINE
     Indication: Product used for unknown indication
     Dosage: 100 MG, QD
     Route: 048
  25. QUETIAPINE [Suspect]
     Active Substance: QUETIAPINE
     Dosage: 1 MG, QD
     Route: 048
  26. QUETIAPINE [Suspect]
     Active Substance: QUETIAPINE
     Dosage: UNK
     Route: 065
  27. QUETIAPINE [Suspect]
     Active Substance: QUETIAPINE
     Dosage: 1 DF, QD
     Route: 048
  28. CYMBALTA [Suspect]
     Active Substance: DULOXETINE HYDROCHLORIDE
     Indication: Product used for unknown indication
     Dosage: 30 MG
     Route: 065
  29. CYMBALTA [Suspect]
     Active Substance: DULOXETINE HYDROCHLORIDE
     Dosage: UNK, CAPSULE, DELAYED RELEASE
     Route: 048
  30. CYMBALTA [Suspect]
     Active Substance: DULOXETINE HYDROCHLORIDE
     Dosage: UNK
     Route: 065
  31. CYMBALTA [Suspect]
     Active Substance: DULOXETINE HYDROCHLORIDE
     Dosage: 30 MG
     Route: 065
  32. CYMBALTA [Suspect]
     Active Substance: DULOXETINE HYDROCHLORIDE
     Dosage: UNK
     Route: 065
  33. CYMBALTA [Suspect]
     Active Substance: DULOXETINE HYDROCHLORIDE
     Dosage: 30 UNK
     Route: 048
  34. DULOXETINE [Suspect]
     Active Substance: DULOXETINE
     Indication: Product used for unknown indication
     Dosage: UNK
     Route: 048
  35. DULOXETINE [Suspect]
     Active Substance: DULOXETINE
     Dosage: UNK
     Route: 048
  36. DULOXETINE [Suspect]
     Active Substance: DULOXETINE
     Dosage: UNK, CAPSULE DELAYED RELEASE
     Route: 065
  37. DULOXETINE [Suspect]
     Active Substance: DULOXETINE
     Dosage: UNK
     Route: 065
  38. QUETIAPINE FUMARATE [Suspect]
     Active Substance: QUETIAPINE FUMARATE
     Indication: Product used for unknown indication
     Dosage: 100 MG, QD
     Route: 048
  39. ERYTHROMYCIN [Suspect]
     Active Substance: ERYTHROMYCIN
     Indication: Product used for unknown indication
     Dosage: 1 DF, QD
     Route: 065
  40. ERYTHROMYCIN PROPIONATE [Suspect]
     Active Substance: ERYTHROMYCIN PROPIONATE
     Indication: Acne
     Dosage: 1 DF
     Route: 065
  41. ERYTHROMYCIN PROPIONATE [Suspect]
     Active Substance: ERYTHROMYCIN PROPIONATE
     Indication: Product used for unknown indication
     Dosage: 1 DF, QD
     Route: 065
  42. DULOXETINE HYDROCHLORIDE [Suspect]
     Active Substance: DULOXETINE HYDROCHLORIDE
     Indication: Product used for unknown indication
     Dosage: 30 MG
     Route: 065
  43. DULOXETINE HYDROCHLORIDE [Suspect]
     Active Substance: DULOXETINE HYDROCHLORIDE
     Dosage: UNK
     Route: 065
  44. DULOXETINE HYDROCHLORIDE [Suspect]
     Active Substance: DULOXETINE HYDROCHLORIDE
     Dosage: 30 MG
     Route: 065
  45. DULOXETINE HYDROCHLORIDE [Suspect]
     Active Substance: DULOXETINE HYDROCHLORIDE
     Dosage: UNK
     Route: 065
  46. BUPROPION HYDROBROMIDE [Suspect]
     Active Substance: BUPROPION HYDROBROMIDE
     Indication: Product used for unknown indication
     Dosage: 300 MG, QD
     Route: 061
  47. BUPROPION HYDROBROMIDE [Suspect]
     Active Substance: BUPROPION HYDROBROMIDE
     Dosage: 1 DF, QD
     Route: 061
  48. BUPROPION HYDROBROMIDE [Suspect]
     Active Substance: BUPROPION HYDROBROMIDE
     Dosage: UNK UNK, QD
     Route: 061

REACTIONS (2)
  - Abortion spontaneous [Unknown]
  - Maternal exposure during pregnancy [Unknown]
